FAERS Safety Report 24770226 (Version 2)
Quarter: 2024Q4

REPORT INFORMATION
  Report Type: Other
  Country: CA (occurrence: CA)
  Receive Date: 20241224
  Receipt Date: 20241228
  Transmission Date: 20250115
  Serious: Yes (Life-Threatening, Disabling)
  Sender: GLENMARK
  Company Number: CA-GLENMARK PHARMACEUTICALS-2024GMK096362

PATIENT

DRUGS (3)
  1. GABAPENTIN [Suspect]
     Active Substance: GABAPENTIN
     Indication: Product used for unknown indication
     Dosage: UNK (FORMULATION: CAPSULES)
     Route: 048
  2. AVENTYL [Suspect]
     Active Substance: NORTRIPTYLINE HYDROCHLORIDE
     Indication: Back pain
     Dosage: 10 MILLIGRAM, 1 EVERY 1 DAYS
     Route: 048
  3. LYRICA [Suspect]
     Active Substance: PREGABALIN
     Indication: Back pain
     Dosage: UNK, 3 EVERY 1 DAYS
     Route: 065

REACTIONS (2)
  - Headache [Recovered/Resolved]
  - Self-injurious ideation [Recovered/Resolved]
